FAERS Safety Report 6762365-5 (Version None)
Quarter: 2010Q2

REPORT INFORMATION
  Report Type: 
  Country: None (occurrence: None)
  Receive Date: 20100609
  Receipt Date: 20100502
  Transmission Date: 20101027
  Serious: Yes (Other)
  Sender: FDA-Public Use
  Company Number: US-ROCHE-702434

PATIENT
  Sex: Male

DRUGS (1)
  1. TAMIFLU [Suspect]
     Route: 065

REACTIONS (1)
  - NEUROLOGICAL SYMPTOM [None]
